FAERS Safety Report 5311844-6 (Version None)
Quarter: 2007Q2

REPORT INFORMATION
  Report Type: 
  Country: None (occurrence: None)
  Receive Date: 20070430
  Receipt Date: 20060522
  Transmission Date: 20071010
  Serious: No
  Sender: FDA-Public Use
  Company Number: 2003UW12102

PATIENT
  Age: 69 Year
  Sex: Female
  Weight: 64.4 kg

DRUGS (3)
  1. NEXIUM [Suspect]
     Indication: ERUCTATION
     Route: 048
     Dates: start: 20030101
  2. NEXIUM [Suspect]
     Indication: DYSPEPSIA
     Route: 048
     Dates: start: 20030101
  3. NEXIUM [Suspect]
     Route: 048
     Dates: start: 20030101

REACTIONS (5)
  - BACK DISORDER [None]
  - DRUG INEFFECTIVE [None]
  - GOITRE [None]
  - HYPERTHYROIDISM [None]
  - WEIGHT INCREASED [None]
